FAERS Safety Report 6108313-2 (Version None)
Quarter: 2009Q1

REPORT INFORMATION
  Report Type: 
  Country: None (occurrence: None)
  Receive Date: 20090309
  Receipt Date: 20090226
  Transmission Date: 20090719
  Serious: Yes (Hospitalization)
  Sender: FDA-Public Use
  Company Number: US-ROCHE-545380

PATIENT
  Sex: Female
  Weight: 96.5 kg

DRUGS (23)
  1. METHOXY POLYETHYLENE GLYCOL-EPOETIN BETA [Suspect]
     Dosage: ROUTE REPORTED AS IVP.
     Route: 042
     Dates: start: 20050810
  2. METHOXY POLYETHYLENE GLYCOL-EPOETIN BETA [Suspect]
     Route: 042
  3. SODIUM BICARBONATE [Concomitant]
     Dosage: REPORTED AS NAHO3.
  4. SODIUM BICARBONATE [Concomitant]
     Dosage: REPORTED NA BICARBONATE.
     Dates: start: 20080130
  5. ROSIGLITAZONE [Concomitant]
  6. METOPROLOL [Concomitant]
     Dates: start: 20080130
  7. NEPHRO-VITE [Concomitant]
     Dates: start: 20080130
  8. CLOZAPINE [Concomitant]
     Dosage: REPORTED AS CLOZARIL
     Dates: start: 20080130
  9. FUROSEMIDE [Concomitant]
     Dosage: REPORTED AS LASIX
     Dates: start: 20080130
  10. LEVOTHYROXINE SODIUM [Concomitant]
     Dosage: REPORTED AS SYNTHROID.
     Dates: start: 20080130
  11. COTAZYM [Concomitant]
     Dates: start: 20080130
  12. VITAMIN B COMPLEX CAP [Concomitant]
  13. DIVALPROEX SODIUM [Concomitant]
  14. DIPHENOXYLATE [Concomitant]
  15. ACETAMINOPHEN [Concomitant]
  16. LORAZEPAM [Concomitant]
     Dosage: REPORTED AS ATIVAN
  17. AMBIEN [Concomitant]
     Dates: start: 20080130
  18. SEVELAMER HYDROCHLORIDE [Concomitant]
     Dates: start: 20080130
  19. DEPAKOTE [Concomitant]
     Dates: start: 20080130
  20. LOVASTATIN [Concomitant]
  21. ATORVASTATIN [Concomitant]
     Dates: start: 20080130, end: 20080201
  22. PERFLUTREN [Concomitant]
     Dosage: REPORTED AD PERFLUTREN LIPID
     Dates: start: 20080130
  23. PROTONIX [Concomitant]
     Dates: start: 20080130

REACTIONS (1)
  - ATRIAL FIBRILLATION [None]
